FAERS Safety Report 19308681 (Version 1)
Quarter: 2021Q2

REPORT INFORMATION
  Report Type: Spontaneous
  Country: US (occurrence: US)
  Receive Date: 20210526
  Receipt Date: 20210526
  Transmission Date: 20210717
  Serious: Yes (Hospitalization)
  Sender: FDA-Public Use
  Company Number: US-MYLANLABS-2021M1030878

PATIENT
  Age: 14 Year
  Sex: Female

DRUGS (6)
  1. OCTREOTIDE. [Suspect]
     Active Substance: OCTREOTIDE
     Indication: CHYLOTHORAX
  2. ALBUMIN [Suspect]
     Active Substance: ALBUMIN HUMAN
     Indication: UPPER GASTROINTESTINAL HAEMORRHAGE
     Dosage: INFUSION
  3. BUDESONIDE. [Suspect]
     Active Substance: BUDESONIDE
     Indication: UPPER GASTROINTESTINAL HAEMORRHAGE
     Route: 048
  4. BUDESONIDE. [Suspect]
     Active Substance: BUDESONIDE
     Indication: CHYLOTHORAX
  5. ALBUMIN [Suspect]
     Active Substance: ALBUMIN HUMAN
     Indication: CHYLOTHORAX
  6. OCTREOTIDE. [Suspect]
     Active Substance: OCTREOTIDE
     Indication: UPPER GASTROINTESTINAL HAEMORRHAGE
     Route: 065

REACTIONS (1)
  - Drug ineffective [Unknown]
